FAERS Safety Report 9361777 (Version 1)
Quarter: 2013Q2

REPORT INFORMATION
  Report Type: Spontaneous
  Country: IT (occurrence: IT)
  Receive Date: 20130621
  Receipt Date: 20130621
  Transmission Date: 20140414
  Serious: Yes (Other)
  Sender: FDA-Public Use
  Company Number: PHHY2013IT063077

PATIENT
  Sex: Male

DRUGS (3)
  1. RAMIPRIL [Suspect]
     Indication: DRUG ABUSE
     Dosage: 50 MG, ONCE/SINGLE
     Route: 048
     Dates: start: 20130507, end: 20130507
  2. HALCION [Suspect]
     Indication: DRUG ABUSE
     Dosage: 2250 UG, QD
     Route: 048
  3. CARDIOASPIRIN [Suspect]
     Indication: DRUG ABUSE
     Dosage: 500 MG, ONCE/SINGLE
     Route: 048
     Dates: start: 20130507, end: 20130507

REACTIONS (1)
  - Sopor [Recovering/Resolving]
